FAERS Safety Report 20349954 (Version 1)
Quarter: 2022Q1

REPORT INFORMATION
  Report Type: Spontaneous
  Country: GB (occurrence: None)
  Receive Date: 20220119
  Receipt Date: 20220119
  Transmission Date: 20220423
  Serious: Yes (Hospitalization, Other)
  Sender: FDA-Public Use
  Company Number: GB-MLMSERVICE-20211230-3294307-1

PATIENT
  Age: 6 Year
  Sex: Male

DRUGS (1)
  1. CEFUROXIME [Suspect]
     Active Substance: CEFUROXIME
     Indication: Prophylaxis
     Route: 065

REACTIONS (1)
  - Acute generalised exanthematous pustulosis [Recovered/Resolved]
